FAERS Safety Report 19609007 (Version 2)
Quarter: 2021Q3

REPORT INFORMATION
  Report Type: Spontaneous
  Country: US (occurrence: US)
  Receive Date: 20210726
  Receipt Date: 20210823
  Transmission Date: 20211014
  Serious: Yes (Other)
  Sender: FDA-Public Use
  Company Number: US-SA-2021SA243312

PATIENT
  Sex: Male
  Weight: 88.44 kg

DRUGS (2)
  1. DUPIXENT [Suspect]
     Active Substance: DUPILUMAB
     Indication: DERMATITIS ATOPIC
     Dosage: 600 MG, 1X
     Route: 065
     Dates: start: 20210624, end: 20210624
  2. CLOBETASOL [Concomitant]
     Active Substance: CLOBETASOL
     Dosage: 0.5 %

REACTIONS (2)
  - Vision blurred [Unknown]
  - Blindness [Unknown]

NARRATIVE: CASE EVENT DATE: 2021
